FAERS Safety Report 4961850-6 (Version None)
Quarter: 2006Q1

REPORT INFORMATION
  Report Type: 
  Country: None (occurrence: None)
  Receive Date: 20060329
  Receipt Date: 20060318
  Transmission Date: 20060701
  Serious: Yes (Other)
  Sender: FDA-Public Use
  Company Number: 2006037473

PATIENT
  Age: 34 Year
  Sex: Male
  Weight: 108.8633 kg

DRUGS (1)
  1. LUBRIDERM SKIN RENEWEL FIRMING BODY LOTION (POLY HYDROXY ACID) [Suspect]
     Indication: DRY SKIN
     Dosage: UNSPEC AMT ON ARMS AND HANDS, ONCE, TOPICAL
     Route: 061
     Dates: start: 20060301, end: 20060301

REACTIONS (2)
  - APPLICATION SITE ABSCESS [None]
  - SUBCUTANEOUS ABSCESS [None]
